FAERS Safety Report 4439860-7 (Version None)
Quarter: 2004Q3

REPORT INFORMATION
  Report Type: 
  Country: None (occurrence: None)
  Receive Date: 20040831
  Receipt Date: 20040813
  Transmission Date: 20050211
  Serious: Yes (Life-Threatening)
  Sender: FDA-Public Use
  Company Number: SP00303

PATIENT
  Age: 51 Year
  Weight: 117.028 kg

DRUGS (3)
  1. COLAZAL [Suspect]
     Indication: COLITIS ULCERATIVE
     Dosage: 2.25G/TID, ORAL
     Route: 048
     Dates: start: 20040420, end: 20040620
  2. ASACOL [Concomitant]
  3. PREDNISONE [Concomitant]

REACTIONS (5)
  - BLOOD CHOLESTEROL INCREASED [None]
  - CHOLESTASIS [None]
  - COLITIS ULCERATIVE [None]
  - CYTOLYTIC HEPATITIS [None]
  - NEUTROPHIL PERCENTAGE INCREASED [None]
